FAERS Safety Report 23979008 (Version 2)
Quarter: 2024Q2

REPORT INFORMATION
  Report Type: Spontaneous
  Country: US (occurrence: US)
  Receive Date: 20240615
  Receipt Date: 20240620
  Transmission Date: 20240716
  Serious: Yes (Life-Threatening, Hospitalization, Other)
  Sender: FDA-Public Use
  Company Number: US-AUROBINDO-AUR-APL-2024-028779

PATIENT
  Age: 65 Year
  Sex: Female

DRUGS (2)
  1. METHOTREXATE [Suspect]
     Active Substance: METHOTREXATE
     Indication: Product used for unknown indication
     Dosage: 4 DOSAGE FORM, DAILY
     Route: 065
  2. METHOTREXATE [Suspect]
     Active Substance: METHOTREXATE
     Dosage: 4 DOSAGE FORM, EVERY WEEK
     Route: 065

REACTIONS (13)
  - Pancytopenia [Unknown]
  - Acute kidney injury [Recovering/Resolving]
  - Hypoxic-ischaemic encephalopathy [Not Recovered/Not Resolved]
  - Encephalopathy [Unknown]
  - Neurotoxicity [Unknown]
  - Hypoxia [Unknown]
  - Chest pain [Unknown]
  - Cough [Unknown]
  - Lip swelling [Unknown]
  - Pyrexia [Unknown]
  - Mental status changes [Recovered/Resolved]
  - Overdose [Unknown]
  - Inappropriate schedule of product administration [Unknown]
